FAERS Safety Report 8946952 (Version 1)
Quarter: 2012Q4

REPORT INFORMATION
  Report Type: 
  Country: IT (occurrence: IT)
  Receive Date: 20121205
  Receipt Date: 20121205
  Transmission Date: 20130627
  Serious: Yes (Hospitalization, Other)
  Sender: FDA-Public Use
  Company Number: IT-ELI_LILLY_AND_COMPANY-IT201210006865

PATIENT
  Age: 85 None
  Sex: Female

DRUGS (11)
  1. HUMALOG LISPRO [Suspect]
     Indication: TYPE 2 DIABETES MELLITUS
     Dosage: 6 IU, qd
     Route: 058
     Dates: start: 20080101, end: 201210
  2. HUMALOG LISPRO [Suspect]
     Indication: TYPE 2 DIABETES MELLITUS
     Dosage: 6 IU, qd
     Dates: start: 201210
  3. LANTUS [Concomitant]
     Indication: TYPE 2 DIABETES MELLITUS
     Dosage: 10 IU, qd
     Route: 058
     Dates: start: 20080101, end: 20120705
  4. RAMIPRIL [Concomitant]
     Indication: HYPERTENSION
     Dosage: 2.5 mg, UNK
     Route: 048
  5. AMIODARONE HYDROCHLORIDE [Concomitant]
  6. SPIRONOLACTONE [Concomitant]
     Dosage: 25 mg, UNK
     Route: 048
  7. BECOZYM [Concomitant]
  8. FERROGRAD [Concomitant]
     Indication: HYPERTENSION
     Dosage: 105 ug, UNK
     Route: 048
  9. LASIX [Concomitant]
     Indication: HYPERTENSION
     Dosage: 25 mg, qd
     Route: 048
  10. KCL [Concomitant]
     Dosage: 600 mg, UNK
  11. COUMADIN [Concomitant]
     Indication: PROPHYLAXIS
     Dosage: 5 mg, qd
     Route: 048

REACTIONS (6)
  - Pulmonary embolism [Unknown]
  - Ischaemic stroke [Not Recovered/Not Resolved]
  - Hypoglycaemia [Recovering/Resolving]
  - Altered state of consciousness [Recovering/Resolving]
  - Hyperhidrosis [Recovering/Resolving]
  - Blood glucose increased [Unknown]
